FAERS Safety Report 7922642-9 (Version None)
Quarter: 2011Q4

REPORT INFORMATION
  Report Type: 
  Country: None (occurrence: None)
  Receive Date: 20111117
  Receipt Date: 20110926
  Transmission Date: 20120403
  Serious: No
  Sender: FDA-Public Use
  Company Number: US-ALLERGAN-1103702US

PATIENT
  Age: 90 Year
  Sex: Female

DRUGS (2)
  1. DORZOLAMIDE HCL AND TIMOLOL MALEATE [Suspect]
     Indication: PRODUCT USED FOR UNKNOWN INDICATION
     Dosage: UNK
  2. COMBIGAN [Suspect]
     Indication: GLAUCOMA
     Dosage: UNK

REACTIONS (2)
  - EYE DISCHARGE [None]
  - EYE PAIN [None]
